FAERS Safety Report 9491016 (Version 3)
Quarter: 2013Q4

REPORT INFORMATION
  Report Type: Spontaneous
  Country: US (occurrence: US)
  Receive Date: 20130830
  Receipt Date: 20131011
  Transmission Date: 20140711
  Serious: No
  Sender: FDA-Public Use
  Company Number: US-PFIZER INC-2013250901

PATIENT
  Age: 42 Year
  Sex: Female
  Weight: 58.96 kg

DRUGS (4)
  1. LYRICA [Suspect]
     Indication: NEURALGIA
     Dosage: 75 MG, SINGLE
     Route: 048
     Dates: start: 20130828, end: 20130828
  2. LYRICA [Suspect]
     Indication: INTERVERTEBRAL DISC DEGENERATION
     Dosage: 75 MG, 2X/DAY
     Route: 048
     Dates: start: 20130829, end: 20130902
  3. LYRICA [Suspect]
     Indication: SCIATICA
  4. ALLEGRA [Concomitant]
     Indication: SEASONAL ALLERGY
     Dosage: UNK, 1X/DAY

REACTIONS (6)
  - Dizziness [Not Recovered/Not Resolved]
  - Somnolence [Recovered/Resolved]
  - Nausea [Not Recovered/Not Resolved]
  - Drug intolerance [Unknown]
  - Disturbance in attention [Recovered/Resolved]
  - Fatigue [Recovered/Resolved]
